FAERS Safety Report 10041135 (Version 2)
Quarter: 2014Q2

REPORT INFORMATION
  Report Type: Report from Study
  Country: CO (occurrence: CO)
  Receive Date: 20140327
  Receipt Date: 20140418
  Transmission Date: 20141212
  Serious: Yes (Death, Hospitalization)
  Sender: FDA-Public Use
  Company Number: CO-ASTRAZENECA-2014SE19602

PATIENT
  Sex: Male

DRUGS (5)
  1. BRILINTA [Suspect]
     Indication: INFARCTION
     Route: 048
     Dates: start: 20131216, end: 20140228
  2. BRILINTA [Suspect]
     Indication: INFARCTION
     Route: 048
     Dates: start: 20140301
  3. ASA [Concomitant]
  4. OMEPRAZOLE [Concomitant]
  5. LOSARTAN [Concomitant]

REACTIONS (2)
  - Acute myocardial infarction [Fatal]
  - Intentional product misuse [Unknown]
